FAERS Safety Report 13094076 (Version 2)
Quarter: 2017Q1

REPORT INFORMATION
  Report Type: Spontaneous
  Country: US (occurrence: US)
  Receive Date: 20170106
  Receipt Date: 20170203
  Transmission Date: 20170428
  Serious: No
  Sender: FDA-Public Use
  Company Number: US-PFIZER INC-2017001155

PATIENT
  Age: 58 Year
  Sex: Female

DRUGS (2)
  1. IBRANCE [Suspect]
     Active Substance: PALBOCICLIB
     Dosage: 125 MG, CYCLIC (ONCE A DAILY X 21 DAYS)
     Route: 048
     Dates: start: 20160913
  2. IBRANCE [Suspect]
     Active Substance: PALBOCICLIB
     Indication: BREAST CANCER
     Dosage: 120 MG, DAILY
     Route: 048
     Dates: start: 20160912

REACTIONS (4)
  - Alopecia [Unknown]
  - Pruritus [Unknown]
  - Skin fissures [Unknown]
  - Onychoclasis [Unknown]

NARRATIVE: CASE EVENT DATE: 20161230
